FAERS Safety Report 17047270 (Version 1)
Quarter: 2019Q4

REPORT INFORMATION
  Report Type: Spontaneous
  Country: US (occurrence: US)
  Receive Date: 20191119
  Receipt Date: 20191119
  Transmission Date: 20200122
  Serious: Yes (Hospitalization)
  Sender: FDA-Public Use
  Company Number: US-NOVOPROD-696054

PATIENT
  Sex: Female

DRUGS (1)
  1. LEVEMIR [Suspect]
     Active Substance: INSULIN DETEMIR
     Indication: TYPE 2 DIABETES MELLITUS
     Dosage: 18 IU, QD ( AT BEDTIME)
     Route: 058
     Dates: start: 2017, end: 201908

REACTIONS (4)
  - Pruritus [Recovered/Resolved]
  - Bacterial infection [Recovering/Resolving]
  - Large intestine polyp [Recovering/Resolving]
  - Glycosylated haemoglobin increased [Recovered/Resolved]
